FAERS Safety Report 4302872-8 (Version None)
Quarter: 2004Q1

REPORT INFORMATION
  Report Type: 
  Country: None (occurrence: None)
  Receive Date: 20040220
  Receipt Date: 20040206
  Transmission Date: 20041129
  Serious: Yes (Death)
  Sender: FDA-Public Use
  Company Number: R300971-PAP-USA

PATIENT
  Age: 91 Year
  Sex: Male

DRUGS (10)
  1. ACIPHEX [Suspect]
     Indication: GASTROOESOPHAGEAL REFLUX DISEASE
     Dosage: 20 MG, ORAL
     Route: 048
  2. CALTRATE (CALCIUM CARBONATE) [Concomitant]
  3. DITROPAN [Concomitant]
  4. VIOXX [Concomitant]
  5. FLOMAX [Concomitant]
  6. PROPOXY (PROPOXYCAINE) [Concomitant]
  7. ZYPREXA [Concomitant]
  8. PERIDEX (CHLORHEXIDINE GLUCONATE) [Concomitant]
  9. ACETAMINOPHEN [Concomitant]
  10. ULTRAM (PHENAGLYCODOL) [Concomitant]

REACTIONS (1)
  - DEMENTIA [None]
